FAERS Safety Report 20106905 (Version 2)
Quarter: 2021Q4

REPORT INFORMATION
  Report Type: Report from Study
  Country: TR (occurrence: TR)
  Receive Date: 20211124
  Receipt Date: 20211218
  Transmission Date: 20220303
  Serious: Yes (Death, Hospitalization)
  Sender: FDA-Public Use
  Company Number: TR-REGENERON PHARMACEUTICALS, INC.-2021-101417

PATIENT

DRUGS (9)
  1. CEMIPLIMAB [Suspect]
     Active Substance: CEMIPLIMAB
     Indication: Lung squamous cell carcinoma stage IV
     Dosage: 350 MG, Q3W
     Route: 042
     Dates: start: 20200911, end: 20211025
  2. CARBOPLATIN [Suspect]
     Active Substance: CARBOPLATIN
     Indication: Lung squamous cell carcinoma stage IV
     Dosage: AUC OF 5 OR 6 ML/MIN/1.73 M2, Q3W
     Route: 042
     Dates: start: 20190613, end: 20191003
  3. PACLITAXEL [Suspect]
     Active Substance: PACLITAXEL
     Indication: Lung squamous cell carcinoma stage IV
     Dosage: 200 MG/M2, Q3W
     Route: 042
     Dates: start: 20190613, end: 20191003
  4. LUSTRAL [Concomitant]
     Active Substance: SERTRALINE HYDROCHLORIDE
     Indication: Product used for unknown indication
     Dosage: 25 MG, QD
     Route: 048
     Dates: start: 2018
  5. ZALDIAR [Concomitant]
     Active Substance: ACETAMINOPHEN\TRAMADOL HYDROCHLORIDE
     Indication: Pain
     Dosage: 325 MG, QD
     Route: 048
     Dates: start: 20191206
  6. ASPIRIN [Concomitant]
     Active Substance: ASPIRIN
     Indication: Tachycardia
     Dosage: 80 MG, QD
     Route: 048
     Dates: start: 20201112
  7. NEBIVOLOL HYDROCHLORIDE [Concomitant]
     Active Substance: NEBIVOLOL HYDROCHLORIDE
     Indication: Tachycardia
     Dosage: 5 MG, QD
     Route: 048
     Dates: start: 20201112
  8. EUTHYROX [Concomitant]
     Active Substance: LEVOTHYROXINE SODIUM
     Indication: Hypothyroidism
     Dosage: 75 ?G, QD
     Route: 048
     Dates: start: 20210125
  9. BETASERC                           /00141801/ [Concomitant]
     Indication: Vertigo
     Dosage: 8 MG, QD
     Route: 048
     Dates: start: 20210301

REACTIONS (2)
  - Death [Fatal]
  - Ketoacidosis [Not Recovered/Not Resolved]

NARRATIVE: CASE EVENT DATE: 20211115
